FAERS Safety Report 7554277-4 (Version None)
Quarter: 2011Q2

REPORT INFORMATION
  Report Type: 
  Country: None (occurrence: None)
  Receive Date: 20110617
  Receipt Date: 20110610
  Transmission Date: 20111010
  Serious: Yes (Hospitalization)
  Sender: FDA-Public Use
  Company Number: JP-CEPHALON-2011003101

PATIENT
  Age: 80 Year
  Sex: Male

DRUGS (2)
  1. BENDAMUSTINE HCL [Suspect]
     Route: 042
     Dates: start: 20110407, end: 20110408
  2. BENDAMUSTINE HCL [Suspect]
     Indication: LYMPHOPLASMACYTOID LYMPHOMA/IMMUNOCYTOMA
     Route: 042
     Dates: start: 20110308, end: 20110309

REACTIONS (1)
  - ANAEMIA HAEMOLYTIC AUTOIMMUNE [None]
